FAERS Safety Report 13097722 (Version 1)
Quarter: 2017Q1

REPORT INFORMATION
  Report Type: Spontaneous
  Country: US (occurrence: US)
  Receive Date: 20170109
  Receipt Date: 20170109
  Transmission Date: 20170428
  Serious: Yes (Death)
  Sender: FDA-Public Use
  Company Number: None

PATIENT
  Age: 63 Year
  Sex: Female

DRUGS (2)
  1. SYNVISC [Concomitant]
     Active Substance: HYALURONATE SODIUM
  2. CAPECITABINE 500MG TEVA [Suspect]
     Active Substance: CAPECITABINE
     Indication: NEOPLASM MALIGNANT
     Dosage: 1500 BID OR
     Route: 048
     Dates: start: 20161126, end: 201612

REACTIONS (1)
  - Death [None]

NARRATIVE: CASE EVENT DATE: 20161229
